FAERS Safety Report 12604803 (Version 16)
Quarter: 2018Q2

REPORT INFORMATION
  Report Type: Spontaneous
  Country: US (occurrence: US)
  Receive Date: 20160728
  Receipt Date: 20180620
  Transmission Date: 20180711
  Serious: Yes (Hospitalization)
  Sender: FDA-Public Use
  Company Number: US-ACTELION-A-US2016-139803

PATIENT
  Age: 62 Year
  Sex: Male
  Weight: 108.84 kg

DRUGS (25)
  1. LOPERAMIDE [Concomitant]
     Active Substance: LOPERAMIDE
     Dosage: 2 MG TO 4 MG, Q6HRS PRN
  2. SERTRALINE [Concomitant]
     Active Substance: SERTRALINE HYDROCHLORIDE
     Dosage: 100 MG, HALF TO 1 TABLET AS DIRECTED
  3. VOLTAREN [Concomitant]
     Active Substance: DICLOFENAC SODIUM
     Dosage: 1 G, QID AS NEEDED
     Route: 061
  4. CALCIUM ACETATE. [Concomitant]
     Active Substance: CALCIUM ACETATE
     Dosage: 2668 MG, QID
  5. DIALYVITE [Concomitant]
     Active Substance: ASCORBIC ACID\BIOTIN\CALCIUM PANTOTHENATE\COBALAMIN\FOLIC ACID\NIACINAMIDE\PYRIDOXINE HYDROCHLORIDE\RIBOFLAVIN\THIAMINE MONONITRATE
     Dosage: 100 MG-1 MG, QD
  6. LIDOCAINE. [Concomitant]
     Active Substance: LIDOCAINE
     Dosage: 4% CREAM, QID
  7. LORAZEPAM. [Concomitant]
     Active Substance: LORAZEPAM
     Dosage: 0.5 MG, PRN
  8. ONDANSETRON [Concomitant]
     Active Substance: ONDANSETRON
     Dosage: 4 MG, QID AS NEEDED
  9. VELETRI [Suspect]
     Active Substance: EPOPROSTENOL
     Indication: PORTOPULMONARY HYPERTENSION
     Dosage: 10 NG/KG, PER MIN
     Route: 042
     Dates: start: 20110317
  10. MIDODRINE [Concomitant]
     Active Substance: MIDODRINE
     Dosage: 5 MG, TID
  11. OPIUM. [Concomitant]
     Active Substance: OPIUM
     Dosage: 0.3 ML (10 MG/ML), QID AS NEEDED
  12. ACETAMINOPHEN. [Concomitant]
     Active Substance: ACETAMINOPHEN
     Dosage: 650 MG, Q6HRS PRN
  13. COUMADIN [Concomitant]
     Active Substance: WARFARIN SODIUM
     Dosage: 2.5 MG, AS DIRECTED
  14. HYDROMORPHONE [Concomitant]
     Active Substance: HYDROMORPHONE
     Dosage: 4 MG, Q4HRS PRN
  15. HYDROMORPHONE [Concomitant]
     Active Substance: HYDROMORPHONE
     Dosage: 4 MG, Q6HRS PRN
  16. SERTRALINE [Concomitant]
     Active Substance: SERTRALINE HYDROCHLORIDE
     Dosage: 25 MG, QPM
  17. TRACLEER [Suspect]
     Active Substance: BOSENTAN
     Indication: PORTOPULMONARY HYPERTENSION
     Dosage: 125 MG, BID
     Route: 048
     Dates: start: 20120726
  18. REVATIO [Concomitant]
     Active Substance: SILDENAFIL CITRATE
     Dosage: 20 MG, TID
  19. DEPAKOTE [Concomitant]
     Active Substance: DIVALPROEX SODIUM
     Dosage: 250 MG, BID
  20. NEURONTIN [Concomitant]
     Active Substance: GABAPENTIN
     Dosage: UNK MG, QPM
  21. OLANZAPINE. [Concomitant]
     Active Substance: OLANZAPINE
     Dosage: 5 MG, QD
  22. VELETRI [Suspect]
     Active Substance: EPOPROSTENOL
     Dosage: 10 NG/KG, PER MIN
     Route: 042
  23. TACROLIMUS. [Concomitant]
     Active Substance: TACROLIMUS
     Dosage: 3 MG, Q12HRS
  24. ZOLOFT [Concomitant]
     Active Substance: SERTRALINE HYDROCHLORIDE
  25. OPIUM. [Concomitant]
     Active Substance: OPIUM
     Dosage: 0.6 ML (10 MG/ML), QD

REACTIONS (19)
  - Sepsis [Unknown]
  - Tachycardia [Unknown]
  - Oxygen saturation decreased [Unknown]
  - Rash generalised [Unknown]
  - Device related infection [Unknown]
  - Dialysis related complication [Unknown]
  - Viral infection [Unknown]
  - Cellulitis [Recovering/Resolving]
  - Weight increased [Unknown]
  - Lung infection [Unknown]
  - Ear infection [Unknown]
  - Pyrexia [Unknown]
  - Hypotension [Unknown]
  - Influenza [Unknown]
  - Cold sweat [Unknown]
  - Weight fluctuation [Unknown]
  - Chills [Unknown]
  - Blood culture positive [Unknown]
  - Septic shock [Recovered/Resolved]

NARRATIVE: CASE EVENT DATE: 20160720
